FAERS Safety Report 9611587 (Version 5)
Quarter: 2014Q2

REPORT INFORMATION
  Report Type: Spontaneous
  Country: GB (occurrence: GB)
  Receive Date: 20131010
  Receipt Date: 20140609
  Transmission Date: 20141212
  Serious: Yes (Death)
  Sender: FDA-Public Use
  Company Number: PHFR2013GB005670

PATIENT
  Age: 48 Year
  Sex: Male

DRUGS (9)
  1. CLOZARIL [Suspect]
     Indication: SCHIZOPHRENIA
     Dosage: UNK
     Route: 048
     Dates: start: 20010701
  2. CLOZARIL [Suspect]
     Dosage: 800 MG, UNK
     Route: 048
     Dates: start: 20120319
  3. CLOZARIL [Suspect]
     Dosage: 600 MG, UNK
     Route: 048
     Dates: end: 20130430
  4. CLOZARIL [Suspect]
     Dosage: 700 MG, UNK
     Route: 048
     Dates: start: 20130930
  5. SODIUM VALPROATE [Concomitant]
     Dosage: 800 MG, UNK
     Route: 048
     Dates: start: 1997
  6. MIRTAZAPINE [Concomitant]
     Dosage: 30 MG, UNK
     Route: 048
     Dates: start: 20120330
  7. LISINOPRIL [Concomitant]
     Indication: HYPERTENSION
     Dosage: UNK
  8. OMEPRAZOLE [Concomitant]
     Dosage: UNK
  9. SIMVASTATIN [Concomitant]
     Indication: BLOOD CHOLESTEROL INCREASED
     Dosage: UNK

REACTIONS (1)
  - Death [Fatal]
